FAERS Safety Report 13641527 (Version 1)
Quarter: 2017Q2

REPORT INFORMATION
  Report Type: Spontaneous
  Country: US (occurrence: US)
  Receive Date: 20170611
  Receipt Date: 20170611
  Transmission Date: 20170830
  Serious: No
  Sender: FDA-Public Use
  Company Number: None

PATIENT
  Age: 39 Year
  Sex: Male
  Weight: 81.9 kg

DRUGS (2)
  1. OXYCODONE HCL 5MG [Suspect]
     Active Substance: OXYCODONE
     Indication: SPINAL COLUMN STENOSIS
     Dosage: ?          QUANTITY:83 TABLET(S);?
     Route: 048
     Dates: start: 20170608, end: 20170611
  2. OXYCODONE HCL 5MG [Suspect]
     Active Substance: OXYCODONE
     Indication: INTERVERTEBRAL DISC PROTRUSION
     Dosage: ?          QUANTITY:83 TABLET(S);?
     Route: 048
     Dates: start: 20170608, end: 20170611

REACTIONS (4)
  - Drug effect decreased [None]
  - Abdominal distension [None]
  - Migraine [None]
  - Flatulence [None]

NARRATIVE: CASE EVENT DATE: 20170608
